FAERS Safety Report 12079616 (Version 1)
Quarter: 2016Q1

REPORT INFORMATION
  Report Type: Spontaneous
  Country: PR (occurrence: PR)
  Receive Date: 20160216
  Receipt Date: 20160216
  Transmission Date: 20160526
  Serious: No
  Sender: FDA-Public Use
  Company Number: PR-PFIZER INC-2016067781

PATIENT
  Age: 50 Year
  Sex: Female
  Weight: 74.84 kg

DRUGS (3)
  1. SYNTHROID [Concomitant]
     Active Substance: LEVOTHYROXINE SODIUM
     Indication: HYPOTHYROIDISM
     Dosage: 25 MG, DAILY (ONE 25MG TABLET A DAY BY MOUTH USUALLY MORNING BEFORE BREAKFAST)
     Route: 048
  2. PREVACID [Concomitant]
     Active Substance: LANSOPRAZOLE
     Indication: GASTROOESOPHAGEAL REFLUX DISEASE
     Dosage: 30 MG, (ONE 30MG CAPSULE BY MOUTH WITH WATER)
     Route: 048
  3. ADVIL [Suspect]
     Active Substance: IBUPROFEN
     Indication: MUSCLE SPASMS
     Dosage: 400 MG (TWO 200MG COATED TABLETS BY MOUTH WITH WATER AROUND 9:30AM)
     Route: 048
     Dates: start: 20160203

REACTIONS (3)
  - Periorbital oedema [Not Recovered/Not Resolved]
  - Ocular hyperaemia [Recovering/Resolving]
  - Eye pruritus [Recovering/Resolving]

NARRATIVE: CASE EVENT DATE: 20160203
